FAERS Safety Report 5312451-1 (Version None)
Quarter: 2007Q2

REPORT INFORMATION
  Report Type: 
  Country: None (occurrence: None)
  Receive Date: 20070430
  Receipt Date: 20061212
  Transmission Date: 20071010
  Serious: No
  Sender: FDA-Public Use
  Company Number: 2006UW27458

PATIENT
  Age: 67 Year
  Sex: Male
  Weight: 97.5 kg

DRUGS (4)
  1. NEXIUM [Suspect]
     Indication: GASTROOESOPHAGEAL REFLUX DISEASE
     Route: 048
     Dates: start: 20020101
  2. LIPITOR [Concomitant]
  3. BLOOD PRESSURE MEDICATIONS [Concomitant]
  4. ASPIRIN [Concomitant]
     Route: 048

REACTIONS (1)
  - ULCER [None]
